FAERS Safety Report 10084961 (Version 1)
Quarter: 2014Q2

REPORT INFORMATION
  Report Type: Spontaneous
  Country: US (occurrence: US)
  Receive Date: 20140417
  Receipt Date: 20140417
  Transmission Date: 20141212
  Serious: Yes (Hospitalization, Other)
  Sender: FDA-Public Use
  Company Number: US-TEVA-476140USA

PATIENT
  Age: 33 Year
  Sex: Female

DRUGS (3)
  1. FLUOXETINE [Suspect]
     Indication: OBSESSIVE-COMPULSIVE DISORDER
     Dosage: 40MG DAILY
     Route: 048
  2. NIMODIPINE [Suspect]
     Indication: HYPERTENSION
     Route: 048
  3. LABETALOL [Concomitant]
     Indication: HYPERTENSION
     Dosage: 10MG AS NEEDED FOR SEVERE HYPERTENSION
     Route: 042

REACTIONS (1)
  - Cerebral vasoconstriction [Recovered/Resolved]
